FAERS Safety Report 9745780 (Version 1)
Quarter: 2013Q4

REPORT INFORMATION
  Report Type: Report from Study
  Country: US (occurrence: US)
  Receive Date: 20131211
  Receipt Date: 20131211
  Transmission Date: 20140711
  Serious: Yes (Other)
  Sender: FDA-Public Use
  Company Number: US-ASTRAZENECA-2013SE88529

PATIENT
  Age: 57 Year
  Sex: Male

DRUGS (1)
  1. CRESTOR [Suspect]
     Route: 048

REACTIONS (6)
  - Condition aggravated [Unknown]
  - Skin ulcer [Unknown]
  - Poor peripheral circulation [Unknown]
  - Injury [Unknown]
  - Limb discomfort [Unknown]
  - Diabetes mellitus [Unknown]
